FAERS Safety Report 8823611 (Version 1)
Quarter: 2012Q4

REPORT INFORMATION
  Report Type: 
  Country: IT (occurrence: IT)
  Receive Date: 20121003
  Receipt Date: 20121003
  Transmission Date: 20130627
  Serious: Yes (Hospitalization, Other)
  Sender: FDA-Public Use
  Company Number: CHPA2012IT019503

PATIENT
  Age: 22 Year
  Sex: Male

DRUGS (5)
  1. PURSENNID [Suspect]
     Indication: DRUG ABUSE
     Dosage: 240 mg, ONCE/SINGLE
     Route: 048
     Dates: start: 20120824, end: 20120824
  2. XANAX [Suspect]
     Indication: DRUG ABUSE
     Dosage: 30 DF, ONCE/SINGLE
     Route: 048
     Dates: start: 20120824, end: 20120824
  3. FOLIC ACID [Suspect]
     Indication: DRUG ABUSE
     Dosage: 28 DF, ONCE/SINGLE
     Route: 048
     Dates: start: 20120824, end: 20120824
  4. PROGYNOVA [Suspect]
     Indication: DRUG ABUSE
     Dosage: 20 DF, ONCE/SINGLE
     Route: 048
     Dates: start: 20120824, end: 20120824
  5. ALCOHOL [Suspect]
     Dosage: Unk, Unk

REACTIONS (4)
  - Sopor [Recovered/Resolved]
  - Vomiting [Recovered/Resolved]
  - Asthenia [Recovered/Resolved]
  - Intentional overdose [Unknown]
